FAERS Safety Report 12812765 (Version 1)
Quarter: 2016Q4

REPORT INFORMATION
  Report Type: Other
  Country: US (occurrence: US)
  Receive Date: 20161005
  Receipt Date: 20161005
  Transmission Date: 20170207
  Serious: Yes (Other)
  Sender: FDA-Public Use
  Company Number: US-WARNER CHILCOTT, LLC-1058025

PATIENT
  Sex: Female

DRUGS (4)
  1. PLACEBO [Suspect]
     Active Substance: UNSPECIFIED INGREDIENT
     Route: 042
  2. BISPHOSPHONATES [Suspect]
     Active Substance: UNSPECIFIED INGREDIENT
     Route: 048
  3. RISEDRONATE [Suspect]
     Active Substance: RISEDRONATE SODIUM
     Indication: OSTEOPOROSIS
     Route: 048
  4. DENOSUMAB [Suspect]
     Active Substance: DENOSUMAB
     Route: 058

REACTIONS (3)
  - Gait disturbance [Recovered/Resolved]
  - Atypical femur fracture [Recovered/Resolved]
  - Fall [Recovered/Resolved]
